FAERS Safety Report 12573367 (Version 1)
Quarter: 2016Q3

REPORT INFORMATION
  Report Type: Spontaneous
  Country: US (occurrence: US)
  Receive Date: 20160720
  Receipt Date: 20160720
  Transmission Date: 20161109
  Serious: Yes (Other)
  Sender: FDA-Public Use
  Company Number: US-ACTAVIS-2016-15803

PATIENT
  Age: 22 Year
  Sex: Female

DRUGS (2)
  1. CLONAZEPAM (AELLC) [Suspect]
     Active Substance: CLONAZEPAM
     Dosage: 9 MG, SINGLE
     Route: 065
     Dates: start: 20100827
  2. CLONAZEPAM (AELLC) [Suspect]
     Active Substance: CLONAZEPAM
     Indication: ANXIETY
     Dosage: 6 MG, SINGLE
     Route: 065
     Dates: start: 20100823

REACTIONS (3)
  - Intentional overdose [Unknown]
  - Suicidal ideation [Recovered/Resolved]
  - Intentional overdose [Unknown]

NARRATIVE: CASE EVENT DATE: 20100823
